FAERS Safety Report 6766723-4 (Version None)
Quarter: 2010Q2

REPORT INFORMATION
  Report Type: 
  Country: None (occurrence: None)
  Receive Date: 20100611
  Receipt Date: 20100607
  Transmission Date: 20101027
  Serious: Yes (Death, Hospitalization)
  Sender: FDA-Public Use
  Company Number: US-ELI_LILLY_AND_COMPANY-US200906004681

PATIENT
  Sex: Female
  Weight: 68.027 kg

DRUGS (13)
  1. BYETTA [Suspect]
     Dosage: UNK, UNK
     Dates: start: 20051212
  2. AMARYL [Concomitant]
  3. AVANDAMET [Concomitant]
  4. AVAPRO [Concomitant]
  5. FUROSEMIDE [Concomitant]
  6. TOPROL-XL [Concomitant]
  7. CLONIDINE [Concomitant]
  8. DIGITEK [Concomitant]
  9. KLOR-CON [Concomitant]
  10. ASPIRIN [Concomitant]
  11. MULTIVITAMIN [Concomitant]
  12. TYLENOL                                 /SCH/ [Concomitant]
  13. BENADRYL [Concomitant]

REACTIONS (3)
  - DUODENAL ULCER [None]
  - PANCREATIC CARCINOMA METASTATIC [None]
  - RENAL INJURY [None]
